FAERS Safety Report 9785030 (Version 1)
Quarter: 2013Q4

REPORT INFORMATION
  Report Type: Spontaneous
  Country: FR (occurrence: FR)
  Receive Date: 20131227
  Receipt Date: 20131227
  Transmission Date: 20140711
  Serious: Yes (Hospitalization)
  Sender: FDA-Public Use
  Company Number: FR-ASTRAZENECA-2013SE93182

PATIENT
  Age: 29838 Day
  Sex: Male

DRUGS (6)
  1. HYTACAND [Suspect]
     Indication: HYPERTENSION
     Dosage: 8 MG/12.5 MG,  1 DF EVERY DAY
     Route: 048
     Dates: end: 20131211
  2. AMLOR [Suspect]
     Indication: HYPERTENSION
     Route: 048
     Dates: end: 20131211
  3. AMLOR [Suspect]
     Indication: HYPERTENSION
     Route: 048
     Dates: start: 20131211
  4. DAONIL [Suspect]
     Indication: TYPE 2 DIABETES MELLITUS
     Route: 048
     Dates: end: 20131210
  5. SPIFEN [Concomitant]
  6. KLIPAL CODEINE [Concomitant]

REACTIONS (2)
  - Orthostatic hypotension [Recovered/Resolved]
  - Hypoglycaemia [Recovering/Resolving]
